FAERS Safety Report 10519739 (Version 1)
Quarter: 2014Q4

REPORT INFORMATION
  Report Type: Spontaneous
  Country: US (occurrence: None)
  Receive Date: 20141014
  Receipt Date: 20141014
  Transmission Date: 20150528
  Serious: Yes (Hospitalization)
  Sender: FDA-Public Use
  Company Number: None

PATIENT
  Age: 65 Year
  Sex: Male
  Weight: 120.5 kg

DRUGS (1)
  1. GLIPIZIDE. [Suspect]
     Active Substance: GLIPIZIDE
     Indication: TYPE 2 DIABETES MELLITUS
     Dosage: 10MG  BID  PO
     Route: 048
     Dates: start: 20101112, end: 20141002

REACTIONS (4)
  - Dizziness [None]
  - Hypoglycaemia [None]
  - Palpitations [None]
  - Hyperhidrosis [None]

NARRATIVE: CASE EVENT DATE: 20141002
